FAERS Safety Report 17664826 (Version 1)
Quarter: 2020Q2

REPORT INFORMATION
  Report Type: Spontaneous
  Country: US (occurrence: US)
  Receive Date: 20200414
  Receipt Date: 20200414
  Transmission Date: 20200713
  Serious: Yes (Hospitalization)
  Sender: FDA-Public Use
  Company Number: US-PFIZER INC-2020145829

PATIENT
  Age: 76 Year
  Sex: Male

DRUGS (2)
  1. METOPROLOL. [Concomitant]
     Active Substance: METOPROLOL
     Dosage: 25 MG, 1X/DAY
  2. DOFETILIDE. [Suspect]
     Active Substance: DOFETILIDE
     Indication: ARRHYTHMIA
     Dosage: 500 MG, 2X/DAY
     Dates: start: 2018, end: 2018

REACTIONS (2)
  - Drug ineffective [Unknown]
  - Product prescribing error [Unknown]

NARRATIVE: CASE EVENT DATE: 2018
